FAERS Safety Report 4832126-2 (Version None)
Quarter: 2005Q4

REPORT INFORMATION
  Report Type: 
  Country: None (occurrence: None)
  Receive Date: 20051118
  Receipt Date: 20050713
  Transmission Date: 20060501
  Serious: Yes (Hospitalization)
  Sender: FDA-Public Use
  Company Number: US-MERCK-0507USA02044

PATIENT
  Age: 74 Year
  Sex: Female
  Weight: 86 kg

DRUGS (5)
  1. VIOXX [Suspect]
     Indication: BACK PAIN
     Route: 048
     Dates: start: 20010101, end: 20030326
  2. ACTOS [Concomitant]
     Route: 065
  3. LIPITOR [Concomitant]
     Indication: HYPERCHOLESTEROLAEMIA
     Route: 065
  4. LASIX [Concomitant]
     Indication: OEDEMA PERIPHERAL
     Route: 065
  5. ECOTRIN [Concomitant]
     Route: 065

REACTIONS (35)
  - ABDOMINAL PAIN [None]
  - ACUTE CORONARY SYNDROME [None]
  - ANAEMIA [None]
  - ANXIETY [None]
  - ARTERIOSCLEROSIS [None]
  - ARTHRALGIA [None]
  - AZOTAEMIA [None]
  - BACK PAIN [None]
  - CAROTID ARTERY STENOSIS [None]
  - CEREBROVASCULAR ACCIDENT [None]
  - CHEST PAIN [None]
  - CONSTIPATION [None]
  - CYSTITIS [None]
  - DEPRESSION [None]
  - DIZZINESS [None]
  - HAEMATOCHEZIA [None]
  - HEADACHE [None]
  - HYPERKALAEMIA [None]
  - HYPOAESTHESIA [None]
  - LACRIMATION INCREASED [None]
  - MITRAL VALVE CALCIFICATION [None]
  - MITRAL VALVE INCOMPETENCE [None]
  - NAUSEA [None]
  - NON-CARDIAC CHEST PAIN [None]
  - NORMOCHROMIC NORMOCYTIC ANAEMIA [None]
  - PEPTIC ULCER [None]
  - PLEURAL EFFUSION [None]
  - PULMONARY ARTERIAL PRESSURE INCREASED [None]
  - STOMACH DISCOMFORT [None]
  - SYNCOPE [None]
  - TENSION HEADACHE [None]
  - TREMOR [None]
  - TRICUSPID VALVE INCOMPETENCE [None]
  - VERTEBRAL ARTERY STENOSIS [None]
  - VERTIGO [None]
